FAERS Safety Report 22084679 (Version 1)
Quarter: 2023Q1

REPORT INFORMATION
  Report Type: Spontaneous
  Country: CA (occurrence: CA)
  Receive Date: 20230310
  Receipt Date: 20230310
  Transmission Date: 20230418
  Serious: Yes (Life-Threatening)
  Sender: FDA-Public Use
  Company Number: CA-BAXTER-2023BAX013447

PATIENT

DRUGS (1)
  1. SODIUM CHLORIDE [Suspect]
     Active Substance: SODIUM CHLORIDE
     Dosage: AT AN UNSPECIFIED DOSE AND FREQUENCY, BAG VOLUME: 250 ML
     Route: 065

REACTIONS (3)
  - Hypertension [Unknown]
  - Product quality issue [Unknown]
  - Product contamination [Unknown]

NARRATIVE: CASE EVENT DATE: 20230216
